FAERS Safety Report 9604051 (Version 2)
Quarter: 2013Q4

REPORT INFORMATION
  Report Type: Spontaneous
  Country: US (occurrence: US)
  Receive Date: 20131008
  Receipt Date: 20131015
  Transmission Date: 20140711
  Serious: Yes (Hospitalization)
  Sender: FDA-Public Use
  Company Number: US-BAXTER-2013BAX038595

PATIENT
  Age: 73 Year
  Sex: Male

DRUGS (3)
  1. DIANEAL LOW CALCIUM [Suspect]
     Indication: PERITONEAL DIALYSIS
     Route: 033
     Dates: start: 20130701
  2. DIANEAL LOW CALCIUM [Suspect]
     Route: 033
     Dates: start: 20130701
  3. DIANEAL LOW CALCIUM [Suspect]
     Route: 033
     Dates: start: 20130701

REACTIONS (1)
  - Angina pectoris [Recovered/Resolved]
